FAERS Safety Report 16322479 (Version 1)
Quarter: 2019Q2

REPORT INFORMATION
  Report Type: Spontaneous
  Country: CO (occurrence: CO)
  Receive Date: 20190516
  Receipt Date: 20190516
  Transmission Date: 20190711
  Serious: Yes (Hospitalization)
  Sender: FDA-Public Use
  Company Number: CO-ELI_LILLY_AND_COMPANY-CO201905005593

PATIENT
  Sex: Male
  Weight: 98 kg

DRUGS (2)
  1. EFFIENT [Suspect]
     Active Substance: PRASUGREL HYDROCHLORIDE
     Indication: INFARCTION
     Dosage: 10 MG, DAILY
     Route: 048
     Dates: start: 20181119
  2. CARVEDILOL. [Suspect]
     Active Substance: CARVEDILOL
     Indication: INFARCTION
     Dosage: 6.25 MG, DAILY
     Route: 048
     Dates: start: 20181119

REACTIONS (2)
  - Gastritis [Recovered/Resolved]
  - Melaena [Recovered/Resolved]

NARRATIVE: CASE EVENT DATE: 20190415
